FAERS Safety Report 5295763-X (Version None)
Quarter: 2007Q2

REPORT INFORMATION
  Report Type: 
  Country: None (occurrence: None)
  Receive Date: 20070413
  Receipt Date: 20070402
  Transmission Date: 20071010
  Serious: Yes (Disabling)
  Sender: FDA-Public Use
  Company Number: GBWYE091019MAR07

PATIENT
  Sex: Male

DRUGS (1)
  1. EFFEXOR XR [Suspect]
     Indication: DEPRESSION
     Dosage: 75MG, FREQUENCY UNKNOWN
     Route: 048
     Dates: start: 20030122, end: 20031001

REACTIONS (3)
  - CONDITION AGGRAVATED [None]
  - EMOTIONAL DISORDER [None]
  - ERECTILE DYSFUNCTION [None]
